FAERS Safety Report 16763523 (Version 1)
Quarter: 2019Q3

REPORT INFORMATION
  Report Type: Spontaneous
  Country: CA (occurrence: CA)
  Receive Date: 20190902
  Receipt Date: 20190902
  Transmission Date: 20191005
  Serious: Yes (Other)
  Sender: FDA-Public Use
  Company Number: CA-PFIZER INC-2019373918

PATIENT
  Age: 31 Year
  Sex: Female

DRUGS (7)
  1. FOLATE [Concomitant]
     Active Substance: FOLATE SODIUM
     Dosage: 5 MG, 1 EVERY 2 DAY (S)
  2. AMITRIPTYLINE [Concomitant]
     Active Substance: AMITRIPTYLINE
     Dosage: 150 MG, 1X/DAY
  3. VIMOVO [Concomitant]
     Active Substance: ESOMEPRAZOLE MAGNESIUM\NAPROXEN
     Dosage: UNK, 2X/DAY
  4. LEFLUNOMIDE. [Suspect]
     Active Substance: LEFLUNOMIDE
     Dosage: UNK
     Route: 065
  5. METHOTREXATE SODIUM. [Suspect]
     Active Substance: METHOTREXATE SODIUM
     Dosage: 20 MG, WEEKLY
     Route: 065
  6. CHLOROQUINE. [Suspect]
     Active Substance: CHLOROQUINE
     Dosage: UNK
     Route: 065
  7. PARIET [Concomitant]
     Active Substance: RABEPRAZOLE SODIUM
     Dosage: 20 MG, 2 EVERY 1 DAY (S)

REACTIONS (3)
  - Drug ineffective [Recovered/Resolved]
  - Crying [Recovered/Resolved]
  - Joint swelling [Recovered/Resolved]
